FAERS Safety Report 25648898 (Version 1)
Quarter: 2025Q3

REPORT INFORMATION
  Report Type: Spontaneous
  Country: EU (occurrence: EU)
  Receive Date: 20250806
  Receipt Date: 20250806
  Transmission Date: 20251021
  Serious: Yes (Hospitalization)
  Sender: MYLAN
  Company Number: EU-MYLANLABS-2025M1066208

PATIENT
  Age: 74 Year
  Sex: Male

DRUGS (32)
  1. METFORMIN [Suspect]
     Active Substance: METFORMIN HYDROCHLORIDE
     Indication: Diabetes mellitus
     Dosage: 850 MILLIGRAM, TID; THREE TIMES A DAY FOR 15 YEARS
  2. METFORMIN [Suspect]
     Active Substance: METFORMIN HYDROCHLORIDE
     Dosage: 850 MILLIGRAM, TID; THREE TIMES A DAY FOR 15 YEARS
     Route: 065
  3. METFORMIN [Suspect]
     Active Substance: METFORMIN HYDROCHLORIDE
     Dosage: 850 MILLIGRAM, TID; THREE TIMES A DAY FOR 15 YEARS
     Route: 065
  4. METFORMIN [Suspect]
     Active Substance: METFORMIN HYDROCHLORIDE
     Dosage: 850 MILLIGRAM, TID; THREE TIMES A DAY FOR 15 YEARS
  5. MOXONIDINE [Suspect]
     Active Substance: MOXONIDINE
     Indication: Hypertension
     Dosage: 0.2 MILLIGRAM, BID; ONCE IN THE MORNING AND ONCE IN THE EVENING FOR OVER 5 YEARS
  6. MOXONIDINE [Suspect]
     Active Substance: MOXONIDINE
     Dosage: 0.2 MILLIGRAM, BID; ONCE IN THE MORNING AND ONCE IN THE EVENING FOR OVER 5 YEARS
     Route: 065
  7. MOXONIDINE [Suspect]
     Active Substance: MOXONIDINE
     Dosage: 0.2 MILLIGRAM, BID; ONCE IN THE MORNING AND ONCE IN THE EVENING FOR OVER 5 YEARS
     Route: 065
  8. MOXONIDINE [Suspect]
     Active Substance: MOXONIDINE
     Dosage: 0.2 MILLIGRAM, BID; ONCE IN THE MORNING AND ONCE IN THE EVENING FOR OVER 5 YEARS
  9. METOPROLOL [Suspect]
     Active Substance: METOPROLOL
     Indication: Diabetes mellitus
     Dosage: UNK UNK, QD, 50 MG HALF A TABLET ONCE DAILY FOR THE PAST 3 YEARS
  10. METOPROLOL [Suspect]
     Active Substance: METOPROLOL
     Dosage: UNK UNK, QD, 50 MG HALF A TABLET ONCE DAILY FOR THE PAST 3 YEARS
     Route: 065
  11. METOPROLOL [Suspect]
     Active Substance: METOPROLOL
     Dosage: UNK UNK, QD, 50 MG HALF A TABLET ONCE DAILY FOR THE PAST 3 YEARS
     Route: 065
  12. METOPROLOL [Suspect]
     Active Substance: METOPROLOL
     Dosage: UNK UNK, QD, 50 MG HALF A TABLET ONCE DAILY FOR THE PAST 3 YEARS
  13. HYDROCHLOROTHIAZIDE\LOSARTAN POTASSIUM [Suspect]
     Active Substance: HYDROCHLOROTHIAZIDE\LOSARTAN POTASSIUM
     Indication: Hypertension
     Dosage: UNK UNK, QD, 50/12.5 MG ONCE DAILY IN THE MORNING FOR OVER 10 YEARS
  14. HYDROCHLOROTHIAZIDE\LOSARTAN POTASSIUM [Suspect]
     Active Substance: HYDROCHLOROTHIAZIDE\LOSARTAN POTASSIUM
     Dosage: UNK UNK, QD, 50/12.5 MG ONCE DAILY IN THE MORNING FOR OVER 10 YEARS
     Route: 065
  15. HYDROCHLOROTHIAZIDE\LOSARTAN POTASSIUM [Suspect]
     Active Substance: HYDROCHLOROTHIAZIDE\LOSARTAN POTASSIUM
     Dosage: UNK UNK, QD, 50/12.5 MG ONCE DAILY IN THE MORNING FOR OVER 10 YEARS
     Route: 065
  16. HYDROCHLOROTHIAZIDE\LOSARTAN POTASSIUM [Suspect]
     Active Substance: HYDROCHLOROTHIAZIDE\LOSARTAN POTASSIUM
     Dosage: UNK UNK, QD, 50/12.5 MG ONCE DAILY IN THE MORNING FOR OVER 10 YEARS
  17. GLIMEPIRIDE [Suspect]
     Active Substance: GLIMEPIRIDE
     Indication: Diabetes mellitus
     Dosage: 3 MILLIGRAM, QD; FOR 15 YEARS
  18. GLIMEPIRIDE [Suspect]
     Active Substance: GLIMEPIRIDE
     Dosage: 3 MILLIGRAM, QD; FOR 15 YEARS
     Route: 065
  19. GLIMEPIRIDE [Suspect]
     Active Substance: GLIMEPIRIDE
     Dosage: 3 MILLIGRAM, QD; FOR 15 YEARS
     Route: 065
  20. GLIMEPIRIDE [Suspect]
     Active Substance: GLIMEPIRIDE
     Dosage: 3 MILLIGRAM, QD; FOR 15 YEARS
  21. NIFEDIPINE [Suspect]
     Active Substance: NIFEDIPINE
     Indication: Hypertension
     Dosage: 20 MILLIGRAM, BID, ~ONCE IN THE MORNING AND ONCE IN THE EVENING FOR OVER 10 YEARS
  22. NIFEDIPINE [Suspect]
     Active Substance: NIFEDIPINE
     Dosage: 20 MILLIGRAM, BID, ~ONCE IN THE MORNING AND ONCE IN THE EVENING FOR OVER 10 YEARS
     Route: 065
  23. NIFEDIPINE [Suspect]
     Active Substance: NIFEDIPINE
     Dosage: 20 MILLIGRAM, BID, ~ONCE IN THE MORNING AND ONCE IN THE EVENING FOR OVER 10 YEARS
     Route: 065
  24. NIFEDIPINE [Suspect]
     Active Substance: NIFEDIPINE
     Dosage: 20 MILLIGRAM, BID, ~ONCE IN THE MORNING AND ONCE IN THE EVENING FOR OVER 10 YEARS
  25. PENTOXIFYLLINE [Concomitant]
     Active Substance: PENTOXIFYLLINE
     Indication: Product used for unknown indication
     Dosage: 400 MILLIGRAM, QD; FOR 20 YEARS
  26. PENTOXIFYLLINE [Concomitant]
     Active Substance: PENTOXIFYLLINE
     Dosage: 400 MILLIGRAM, QD; FOR 20 YEARS
     Route: 065
  27. PENTOXIFYLLINE [Concomitant]
     Active Substance: PENTOXIFYLLINE
     Dosage: 400 MILLIGRAM, QD; FOR 20 YEARS
     Route: 065
  28. PENTOXIFYLLINE [Concomitant]
     Active Substance: PENTOXIFYLLINE
     Dosage: 400 MILLIGRAM, QD; FOR 20 YEARS
  29. THIOCTIC ACID [Concomitant]
     Active Substance: THIOCTIC ACID
     Indication: Product used for unknown indication
     Dosage: 600 MILLIGRAM, QD; FOR 20 YEARS
  30. THIOCTIC ACID [Concomitant]
     Active Substance: THIOCTIC ACID
     Dosage: 600 MILLIGRAM, QD; FOR 20 YEARS
     Route: 065
  31. THIOCTIC ACID [Concomitant]
     Active Substance: THIOCTIC ACID
     Dosage: 600 MILLIGRAM, QD; FOR 20 YEARS
     Route: 065
  32. THIOCTIC ACID [Concomitant]
     Active Substance: THIOCTIC ACID
     Dosage: 600 MILLIGRAM, QD; FOR 20 YEARS

REACTIONS (1)
  - Basal cell carcinoma [Unknown]
